FAERS Safety Report 4535524-X (Version None)
Quarter: 2004Q4

REPORT INFORMATION
  Report Type: 
  Country: None (occurrence: None)
  Receive Date: 20041222
  Receipt Date: 20041217
  Transmission Date: 20050328
  Serious: Yes (Other)
  Sender: FDA-Public Use
  Company Number: US-MERCK-0412USA02480

PATIENT
  Age: 59 Year
  Sex: Male

DRUGS (6)
  1. VIOXX [Suspect]
     Indication: ARTHRITIS
     Route: 048
     Dates: end: 20041001
  2. NADOLOL [Concomitant]
     Route: 065
  3. HYDRODIURIL [Concomitant]
     Route: 048
  4. ALTACE [Concomitant]
     Route: 065
  5. NEXIUM [Concomitant]
     Route: 065
  6. GLIPIZIDE [Concomitant]
     Route: 065

REACTIONS (1)
  - CEREBROVASCULAR ACCIDENT [None]
